FAERS Safety Report 8960264 (Version 1)
Quarter: 2012Q4

REPORT INFORMATION
  Report Type: 
  Country: US (occurrence: US)
  Receive Date: 20121212
  Receipt Date: 20121212
  Transmission Date: 20130627
  Serious: Yes (Other)
  Sender: FDA-Public Use
  Company Number: US-009507513-1212USA003236

PATIENT
  Age: 55 Year
  Sex: Female

DRUGS (24)
  1. SIMVASTATIN TABLETS, USP [Suspect]
     Dosage: UNK
     Route: 048
  2. JANUMET [Suspect]
     Indication: DIABETES MELLITUS
     Dosage: 50/500 mg, qd
     Route: 048
  3. PRILOSEC [Suspect]
     Indication: GASTROOESOPHAGEAL REFLUX DISEASE
     Dosage: 20 mg, bid
     Route: 048
  4. GABAPENTIN [Suspect]
     Indication: DIABETIC NEUROPATHY
     Dosage: 2 DF, Tid
     Route: 048
     Dates: start: 2004
  5. GABAPENTIN [Suspect]
     Indication: FIBROMYALGIA
  6. METFORMIN [Suspect]
     Indication: DIABETES MELLITUS
     Dosage: 500 mg, qd
     Route: 048
  7. ZYRTEC [Suspect]
     Indication: HYPERSENSITIVITY
     Dosage: 10 mg, qd
     Route: 048
  8. VICODIN [Suspect]
     Indication: ARTHRALGIA
     Dosage: 7.5/325 mg, q4h
     Route: 048
     Dates: start: 2006
  9. ZANAFLEX [Suspect]
     Indication: MUSCLE SPASMS
     Dosage: 2 mg, bid
     Route: 048
     Dates: start: 2009
  10. VALSARTAN [Suspect]
     Indication: HYPERTENSION
     Dosage: 160 mg, qd
     Route: 048
     Dates: start: 2002
  11. BUPROPION HYDROCHLORIDE [Suspect]
     Indication: DEPRESSION
     Dosage: 300 mg, qd
     Route: 048
  12. LOZOL [Suspect]
     Indication: FLUID RETENTION
     Dosage: 1.25 mg, qd
     Route: 048
     Dates: start: 2002
  13. KLONOPIN [Suspect]
     Indication: PANIC ATTACK
     Dosage: 0.5 mg, bid
     Route: 048
  14. KLONOPIN [Suspect]
     Indication: ANXIETY
  15. CARAFATE [Suspect]
     Indication: GASTROOESOPHAGEAL REFLUX DISEASE
     Dosage: 1 g, bid
     Route: 048
  16. AGGRENOX [Suspect]
     Indication: ARTERIAL DISORDER
     Dosage: UNK, bid
     Route: 048
     Dates: start: 200912
  17. FLONASE [Suspect]
     Indication: HYPERSENSITIVITY
     Dosage: 500 mcg, 2 sprays daily per nostril
     Route: 045
     Dates: start: 200912
  18. FLOVENT [Suspect]
     Indication: ASTHMA
     Dosage: 110 mg per puff, 2 puffs bid
  19. VENTOLIN (ALBUTEROL SULFATE) [Suspect]
     Indication: ASTHMA
     Dosage: 90 mcg per puff, 2 puffs q2h
     Route: 048
  20. IMITREX (SUMATRIPTAN) [Suspect]
     Indication: MIGRAINE
     Dosage: 100 mg, prn
     Route: 048
  21. NITROLINGUAL [Suspect]
     Indication: CHEST PAIN
     Dosage: 0.4 mg, prn
     Route: 048
  22. EPIPEN [Suspect]
     Indication: HYPERSENSITIVITY
     Dosage: UNK
     Route: 062
  23. LORTAB [Suspect]
     Route: 048
  24. VITAMINS (UNSPECIFIED) [Suspect]
     Dosage: UNK
     Route: 048

REACTIONS (3)
  - Ill-defined disorder [Unknown]
  - Memory impairment [Not Recovered/Not Resolved]
  - Arterial disorder [Unknown]
